FAERS Safety Report 26076679 (Version 1)
Quarter: 2025Q4

REPORT INFORMATION
  Report Type: Spontaneous
  Country: US (occurrence: US)
  Receive Date: 20251121
  Receipt Date: 20251121
  Transmission Date: 20260118
  Serious: No
  Sender: ALEXION PHARMACEUTICALS
  Company Number: US-AstraZeneca-CH-00998259A

PATIENT
  Sex: Female

DRUGS (1)
  1. BREZTRI [Suspect]
     Active Substance: BUDESONIDE\FORMOTEROL\GLYCOPYRROLATE
     Route: 065

REACTIONS (6)
  - Emphysema [Unknown]
  - Blood pressure increased [Unknown]
  - Chronic obstructive pulmonary disease [Unknown]
  - Scan myocardial perfusion [Unknown]
  - Hypersensitivity [Unknown]
  - Drug interaction [Unknown]
